FAERS Safety Report 6506700-1 (Version None)
Quarter: 2009Q4

REPORT INFORMATION
  Report Type: 
  Country: None (occurrence: None)
  Receive Date: 20091221
  Receipt Date: 20091209
  Transmission Date: 20100525
  Serious: Yes (Other)
  Sender: FDA-Public Use
  Company Number: US-BAYER-200942145NA

PATIENT
  Sex: Female

DRUGS (1)
  1. CAMPATH [Suspect]
     Indication: DRUG USE FOR UNKNOWN INDICATION
     Dosage: STOPPED AT WEEK 4

REACTIONS (3)
  - BLOOD COUNT ABNORMAL [None]
  - CYTOMEGALOVIRUS INFECTION [None]
  - PLATELET COUNT DECREASED [None]
